FAERS Safety Report 5006986-9 (Version None)
Quarter: 2006Q2

REPORT INFORMATION
  Report Type: 
  Country: None (occurrence: None)
  Receive Date: 20060516
  Receipt Date: 20060426
  Transmission Date: 20061013
  Serious: Yes (Hospitalization)
  Sender: FDA-Public Use
  Company Number: JP200604004048

PATIENT
  Age: 67 Year
  Sex: Female

DRUGS (1)
  1. HUMULIN R [Suspect]
     Dosage: 2 U, UNK, SUBCUTANEOUS
     Route: 058

REACTIONS (5)
  - DEPRESSED LEVEL OF CONSCIOUSNESS [None]
  - DRUG HYPERSENSITIVITY [None]
  - EOSINOPHILIA [None]
  - LOCAL REACTION [None]
  - SHOCK [None]
